FAERS Safety Report 16863861 (Version 2)
Quarter: 2019Q4

REPORT INFORMATION
  Report Type: Report from Study
  Country: US (occurrence: US)
  Receive Date: 20190927
  Receipt Date: 20191231
  Transmission Date: 20200122
  Serious: Yes (Other)
  Sender: FDA-Public Use
  Company Number: US-SA-2019SA264873

PATIENT
  Age: 68 Year
  Sex: Female

DRUGS (2)
  1. DUPILUMAB [Suspect]
     Active Substance: DUPILUMAB
     Dosage: 300 MG, QOW
     Route: 058
  2. DUPILUMAB [Suspect]
     Active Substance: DUPILUMAB
     Indication: DERMATITIS ATOPIC
     Dosage: 600 MG, 1X
     Route: 058
     Dates: start: 20190912, end: 20190912

REACTIONS (15)
  - Erythema [Not Recovered/Not Resolved]
  - Pain [Recovering/Resolving]
  - Migraine [Recovering/Resolving]
  - Fibromyalgia [Recovering/Resolving]
  - Milia [Recovering/Resolving]
  - Skin tightness [Recovering/Resolving]
  - Suicidal ideation [Recovered/Resolved]
  - Burning sensation [Recovering/Resolving]
  - Erythema [Recovering/Resolving]
  - Pruritus [Recovering/Resolving]
  - Ulcer [Recovering/Resolving]
  - Swelling face [Recovering/Resolving]
  - Alopecia [Recovering/Resolving]
  - Condition aggravated [Unknown]
  - Pruritus [Unknown]

NARRATIVE: CASE EVENT DATE: 201909
